FAERS Safety Report 5276931-X (Version None)
Quarter: 2007Q1

REPORT INFORMATION
  Report Type: 
  Country: None (occurrence: None)
  Receive Date: 20070327
  Receipt Date: 20070313
  Transmission Date: 20070707
  Serious: Yes (Disabling)
  Sender: FDA-Public Use
  Company Number: GBWYE703116FEB07

PATIENT
  Sex: Male
  Weight: 60.38 kg

DRUGS (2)
  1. ENBREL [Suspect]
     Indication: DRUG USE FOR UNKNOWN INDICATION
     Dosage: 50 MG FREQUENCY UNKNOWN
     Route: 058
     Dates: start: 20070216
  2. ENBREL [Suspect]
     Dosage: PREVIOUS MEDICATION
     Route: 058

REACTIONS (3)
  - INJECTION SITE IRRITATION [None]
  - INJECTION SITE PAIN [None]
  - PHARMACEUTICAL PRODUCT COMPLAINT [None]
